FAERS Safety Report 10156734 (Version 2)
Quarter: 2014Q2

REPORT INFORMATION
  Report Type: Spontaneous
  Country: GR (occurrence: GR)
  Receive Date: 20140507
  Receipt Date: 20140527
  Transmission Date: 20141212
  Serious: Yes (Congenital Anomaly)
  Sender: FDA-Public Use
  Company Number: GR-BAYER-2014-067003

PATIENT
  Sex: 0

DRUGS (4)
  1. ASPIRIN [Suspect]
     Dosage: 80 MG, QD
     Route: 064
  2. ASPIRIN [Suspect]
     Dosage: 80 MG, QD
     Route: 064
  3. NADROPARIN CALCIUM [Suspect]
     Dosage: 2850 IU, QD
     Route: 064
  4. NADROPARIN CALCIUM [Suspect]
     Dosage: 2850 IU, QD
     Route: 064

REACTIONS (5)
  - Limb reduction defect [None]
  - Cerebral ventricle dilatation [None]
  - Congenital cerebellar agenesis [None]
  - Skeletal dysplasia [None]
  - Maternal exposure during pregnancy [None]
